FAERS Safety Report 23058822 (Version 2)
Quarter: 2023Q4

REPORT INFORMATION
  Report Type: Spontaneous
  Country: US (occurrence: US)
  Receive Date: 20231012
  Receipt Date: 20231130
  Transmission Date: 20240110
  Serious: No
  Sender: FDA-Public Use
  Company Number: US-PFIZER INC-202300322243

PATIENT
  Age: 67 Year
  Sex: Female

DRUGS (1)
  1. IBRANCE [Suspect]
     Active Substance: PALBOCICLIB
     Dosage: 125 MG

REACTIONS (9)
  - Hot flush [Unknown]
  - Chills [Unknown]
  - COVID-19 [Unknown]
  - Vomiting [Unknown]
  - Product dose omission in error [Unknown]
  - Brain fog [Unknown]
  - Dehydration [Unknown]
  - White blood cell count decreased [Unknown]
  - Neutrophil count decreased [Unknown]
